FAERS Safety Report 6247708-3 (Version None)
Quarter: 2009Q2

REPORT INFORMATION
  Report Type: 
  Country: None (occurrence: None)
  Receive Date: 20090626
  Receipt Date: 20090616
  Transmission Date: 20091009
  Serious: Yes (Other)
  Sender: FDA-Public Use
  Company Number: PHHY2009DE16095

PATIENT
  Sex: Male

DRUGS (2)
  1. EXJADE [Suspect]
     Indication: THALASSAEMIA BETA
     Dosage: 200 MG, UNK
     Route: 048
     Dates: start: 20081222, end: 20090206
  2. EXJADE [Suspect]
     Dosage: 125 MG, UNK
     Route: 048
     Dates: start: 20090220, end: 20090408

REACTIONS (4)
  - HEPATITIS [None]
  - LIVER FUNCTION TEST ABNORMAL [None]
  - SPLENOMEGALY [None]
  - TRANSAMINASES INCREASED [None]
